FAERS Safety Report 4331085-9 (Version None)
Quarter: 2004Q2

REPORT INFORMATION
  Report Type: 
  Country: None (occurrence: None)
  Receive Date: 20040405
  Receipt Date: 20040312
  Transmission Date: 20050107
  Serious: No
  Sender: FDA-Public Use
  Company Number: US-BRISTOL-MYERS SQUIBB COMPANY-12532206

PATIENT
  Age: 64 Year
  Sex: Male

DRUGS (6)
  1. GLUCOPHAGE XR [Suspect]
     Indication: DIABETES MELLITUS
     Route: 048
     Dates: start: 20031201
  2. METFORMIN HCL [Suspect]
     Indication: DIABETES MELLITUS
     Route: 048
     Dates: start: 20021201, end: 20031201
  3. NIASPAN [Concomitant]
     Dates: start: 20021202
  4. LOVASTATIN [Concomitant]
     Dates: start: 20030901
  5. ACCUPRIL [Concomitant]
     Dates: start: 20010101
  6. ALLOPURINOL [Concomitant]
     Dates: start: 20010601, end: 20031201

REACTIONS (1)
  - THROMBOCYTOPENIA [None]
